FAERS Safety Report 10302834 (Version 1)
Quarter: 2014Q3

REPORT INFORMATION
  Report Type: Spontaneous
  Country: US (occurrence: US)
  Receive Date: 20140714
  Receipt Date: 20140714
  Transmission Date: 20150326
  Serious: No
  Sender: FDA-Public Use
  Company Number: US-009507513-1406USA007228

PATIENT
  Sex: Male

DRUGS (1)
  1. CLARITIN [Suspect]
     Active Substance: LORATADINE
     Indication: HYPERSENSITIVITY
     Dosage: UNK UNK, BID
     Route: 048
     Dates: start: 20140602

REACTIONS (2)
  - Headache [Unknown]
  - Overdose [Unknown]

NARRATIVE: CASE EVENT DATE: 20140602
